FAERS Safety Report 9484558 (Version 1)
Quarter: 2013Q3

REPORT INFORMATION
  Report Type: Spontaneous
  Country: US (occurrence: US)
  Receive Date: 20130828
  Receipt Date: 20130828
  Transmission Date: 20140515
  Serious: Yes (Other)
  Sender: FDA-Public Use
  Company Number: US-AMGEN-KDL426360

PATIENT
  Age: 80 Year
  Sex: Female

DRUGS (4)
  1. ENBREL [Suspect]
     Indication: PRODUCT USED FOR UNKNOWN INDICATION
     Dosage: 50 MG, QWK
     Route: 058
  2. MELOXICAM [Concomitant]
     Dosage: 15 MG, UNK
  3. SIMVASTATIN [Concomitant]
     Dosage: 40 MG, UNK
  4. CLOPIDOGREL BISULFATE [Concomitant]
     Dosage: 7.5 MG, UNK

REACTIONS (2)
  - Cyst [Unknown]
  - Infected cyst [Unknown]
